FAERS Safety Report 7214688-3 (Version None)
Quarter: 2011Q1

REPORT INFORMATION
  Report Type: 
  Country: None (occurrence: None)
  Receive Date: 20110107
  Receipt Date: 20100105
  Transmission Date: 20110831
  Serious: No
  Sender: FDA-Public Use
  Company Number: A0815391A

PATIENT
  Age: 36 Year
  Sex: Male

DRUGS (2)
  1. CRESTOR [Concomitant]
  2. LOVAZA [Suspect]
     Dosage: 2CAP PER DAY
     Route: 048
     Dates: start: 20071101

REACTIONS (3)
  - MUSCULOSKELETAL STIFFNESS [None]
  - PRODUCT QUALITY ISSUE [None]
  - HYPOAESTHESIA [None]
